FAERS Safety Report 5522470-8 (Version None)
Quarter: 2007Q4

REPORT INFORMATION
  Report Type: 
  Country: None (occurrence: None)
  Receive Date: 20071120
  Receipt Date: 20071113
  Transmission Date: 20080405
  Serious: Yes (Disabling)
  Sender: FDA-Public Use
  Company Number: NO-SANOFI-SYNTHELABO-A01200703363

PATIENT
  Sex: Male

DRUGS (6)
  1. IMOVANE [Concomitant]
     Indication: SLEEP DISORDER
     Dosage: 5 MG
     Dates: start: 20060119
  2. CLARITIN [Concomitant]
     Indication: HYPERSENSITIVITY
     Dosage: 10 MG
     Dates: start: 20060531
  3. LEUCOVORIN CALCIUM [Concomitant]
     Indication: COLON CANCER STAGE III
     Route: 041
     Dates: start: 20060320, end: 20060320
  4. ELOXATIN [Suspect]
     Indication: COLON CANCER STAGE III
     Route: 041
     Dates: start: 20060320, end: 20060320
  5. FLUOROURACIL [Concomitant]
     Indication: COLON CANCER STAGE III
     Route: 041
     Dates: start: 20060320, end: 20060320
  6. ORUDIS GEL [Concomitant]
     Dosage: UNK
     Dates: start: 20060221

REACTIONS (4)
  - NEUROPATHY PERIPHERAL [None]
  - PARAESTHESIA [None]
  - POLYNEUROPATHY [None]
  - STRIDOR [None]
